FAERS Safety Report 5491658-7 (Version None)
Quarter: 2007Q4

REPORT INFORMATION
  Report Type: 
  Country: None (occurrence: None)
  Receive Date: 20071022
  Receipt Date: 20071017
  Transmission Date: 20080405
  Serious: Yes (Hospitalization)
  Sender: FDA-Public Use
  Company Number: JP-BAYER-200710756BYL

PATIENT
  Sex: Male

DRUGS (4)
  1. AVELOX [Suspect]
     Indication: PNEUMONIA
     Dosage: UNIT DOSE: 400 MG
     Route: 048
  2. KAKKON-TO [Suspect]
     Indication: NASOPHARYNGITIS
     Route: 048
  3. PL [Suspect]
     Indication: NASOPHARYNGITIS
     Route: 048
  4. MEIACT [Suspect]
     Indication: NASOPHARYNGITIS
     Route: 048

REACTIONS (1)
  - INTERSTITIAL LUNG DISEASE [None]
